FAERS Safety Report 24273389 (Version 2)
Quarter: 2024Q4

REPORT INFORMATION
  Report Type: Other
  Country: CA (occurrence: CA)
  Receive Date: 20240902
  Receipt Date: 20241003
  Transmission Date: 20250115
  Serious: Yes (Death, Hospitalization, Other)
  Sender: APOTEX
  Company Number: CA-APOTEX-2024AP010063

PATIENT
  Age: 35 Year
  Sex: Male

DRUGS (4)
  1. AMOXICILLIN\CLAVULANIC ACID [Suspect]
     Active Substance: AMOXICILLIN\CLAVULANIC ACID
     Indication: Sinusitis
     Dosage: 850 MILLIGRAM, BID
     Route: 048
  2. AMOXICILLIN\CLAVULANIC ACID [Suspect]
     Active Substance: AMOXICILLIN\CLAVULANIC ACID
     Indication: Pharyngitis
  3. MEROPENEM [Suspect]
     Active Substance: MEROPENEM
     Indication: Product used for unknown indication
     Dosage: UNK
     Route: 065
  4. CEFAZOLIN [Suspect]
     Active Substance: CEFAZOLIN
     Indication: Product used for unknown indication
     Dosage: UNK
     Route: 065

REACTIONS (9)
  - Haemophagocytic lymphohistiocytosis [Fatal]
  - Epidermal necrosis [Fatal]
  - Bacteraemia [Fatal]
  - Bronchopulmonary aspergillosis [Fatal]
  - Organ failure [Fatal]
  - Pneumonia necrotising [Fatal]
  - Rash [Fatal]
  - Toxic epidermal necrolysis [Fatal]
  - Drug reaction with eosinophilia and systemic symptoms [Fatal]
